FAERS Safety Report 8512982 (Version 2)
Quarter: 2012Q4

REPORT INFORMATION
  Report Type: Report from Study
  Country: CA (occurrence: CA)
  Receive Date: 20120413
  Receipt Date: 20120828
  Transmission Date: 20130627
  Serious: Yes (Hospitalization)
  Sender: FDA-Public Use
  Company Number: CA-AMGEN-CANCT2012020236

PATIENT
  Age: 60 Year
  Sex: Female
  Weight: 68.2 kg

DRUGS (26)
  1. DENOSUMAB [Suspect]
     Indication: BREAST CANCER
     Route: 058
     Dates: start: 20111102
  2. PLACEBO [Suspect]
     Indication: BREAST CANCER
     Route: 058
     Dates: start: 20111102
  3. NEUPOGEN [Suspect]
     Dosage: 300 mug, qd
     Route: 058
     Dates: start: 20120105, end: 20120111
  4. TAXOTERE [Concomitant]
     Dosage: qd
     Route: 042
     Dates: start: 20120104, end: 20120104
  5. EPIRUBICIN [Concomitant]
     Dosage: UNK UNK, q3wk
     Route: 042
     Dates: start: 20111102, end: 20111214
  6. FLUOROURACIL [Concomitant]
     Dosage: UNK UNK, q3wk
     Route: 042
     Dates: start: 20111102, end: 20111214
  7. CYCLOPHOSPHAMIDE [Concomitant]
     Dosage: UNK UNK, q3wk
     Route: 042
     Dates: start: 20111102, end: 20111214
  8. PREVACID [Concomitant]
     Dosage: 30 mg, qd
     Route: 048
     Dates: start: 20060215, end: 20120107
  9. STEMETIL [Concomitant]
     Dosage: 10 mg, prn
     Route: 048
     Dates: start: 20111103, end: 20120111
  10. GRAVOL [Concomitant]
     Dosage: 50 mg, UNK
     Route: 048
     Dates: start: 20111122, end: 20111126
  11. ATIVAN [Concomitant]
     Dosage: 1 mg, UNK
     Route: 048
     Dates: start: 20111206
  12. IMODIUM [Concomitant]
     Dosage: UNK
     Route: 048
     Dates: start: 20111201, end: 20120108
  13. ECHINACEA [Concomitant]
     Dosage: UNK
     Route: 048
     Dates: start: 20120101, end: 20120104
  14. METOCLOPRAMIDE [Concomitant]
     Dosage: 10 mg, prn
     Route: 048
     Dates: start: 20111221, end: 20120120
  15. EMEND [Concomitant]
     Dosage: UNK
     Route: 048
     Dates: start: 20111214, end: 20120104
  16. CENTRUM [Concomitant]
     Dosage: UNK
     Route: 048
     Dates: start: 20091015
  17. SOFLAX [Concomitant]
     Dosage: 100 mg, UNK
     Route: 048
     Dates: start: 20120104, end: 20120107
  18. TYLENOL EXTRA STRENGTH [Concomitant]
     Dosage: 500 mg, UNK
     Route: 048
     Dates: start: 20120106, end: 20120107
  19. GLUCOSAMINE [Concomitant]
     Dosage: 500 mg, UNK
     Route: 048
     Dates: start: 20091015
  20. DEXAMETHASONE [Concomitant]
     Dosage: 8 mg, UNK
     Route: 042
     Dates: start: 20111102, end: 20120106
  21. SALMON OIL [Concomitant]
     Dosage: 1000 mg, UNK
     Route: 048
     Dates: start: 20091015
  22. VITAMIN C [Concomitant]
     Dosage: 500 mug, UNK
     Route: 048
     Dates: start: 20111015
  23. CINNAMON [Concomitant]
     Dosage: 1000 mg, UNK
     Route: 048
     Dates: start: 20110415, end: 20120412
  24. VITAMIN D [Concomitant]
     Dosage: 400 IU, UNK
     Route: 048
     Dates: start: 20091015
  25. CALCIUM CARBONATE [Concomitant]
     Dosage: 600 mg, qd
     Route: 048
     Dates: start: 20111102
  26. ONDANSETRON [Concomitant]
     Dosage: 8 mg, prn
     Route: 048
     Dates: start: 20111102, end: 20120107

REACTIONS (5)
  - Dehydration [Recovered/Resolved]
  - Nausea [Recovered/Resolved]
  - Arthralgia [Recovered/Resolved]
  - Diarrhoea [Recovered/Resolved]
  - Myalgia [Recovered/Resolved]
